FAERS Safety Report 9039705 (Version 1)
Quarter: 2013Q1

REPORT INFORMATION
  Report Type: Report from Study
  Country: US (occurrence: US)
  Receive Date: 20130130
  Receipt Date: 20130130
  Transmission Date: 20140127
  Serious: No
  Sender: FDA-Public Use
  Company Number: US-ABBOTT-12P-163-0946339-00

PATIENT
  Age: 36 Year
  Sex: Female

DRUGS (12)
  1. HUMIRA 40 MG/0.8 ML PEN [Suspect]
     Indication: RHEUMATOID ARTHRITIS
     Dates: start: 201203
  2. METHOTREXATE [Concomitant]
     Indication: RHEUMATOID ARTHRITIS
     Dosage: 7 TABS WEEKLY
  3. SULFAZINE [Concomitant]
     Indication: RHEUMATOID ARTHRITIS
     Dosage: 2 TAB TWICE DAILY
  4. FOLIC ACID [Concomitant]
     Indication: PRODUCT USED FOR UNKNOWN INDICATION
  5. BYSTOLIC [Concomitant]
     Indication: HYPERTENSION
  6. IRON [Concomitant]
     Indication: PRODUCT USED FOR UNKNOWN INDICATION
  7. DICLOFENAC [Concomitant]
     Indication: RHEUMATOID ARTHRITIS
  8. CITALOPRAM [Concomitant]
     Indication: DEPRESSION
  9. VITAMIN D [Concomitant]
     Indication: PRODUCT USED FOR UNKNOWN INDICATION
     Dosage: WEEKLY
  10. HYDROCODONE W/APAP [Concomitant]
     Indication: PAIN
     Dosage: 7.5/325 1-2 TABS EVERY 4-6 HRS AS NEEDED
  11. TRAMADOL HCL [Concomitant]
     Indication: PAIN
     Dosage: 50MG 1-2 TABS EVERY 6 HRS AS NEEDED
  12. IMITREX [Concomitant]
     Indication: MIGRAINE
     Dosage: 1 TAB EVERY 2HRS, NOT TO EXCEED 4 TABS

REACTIONS (4)
  - Malaise [Recovering/Resolving]
  - Migraine [Recovering/Resolving]
  - Migraine [Recovering/Resolving]
  - Vomiting [Recovering/Resolving]
